FAERS Safety Report 8618497 (Version 2)
Quarter: 2013Q2

REPORT INFORMATION
  Report Type: Spontaneous
  Country: US (occurrence: US)
  Receive Date: 20120618
  Receipt Date: 20130618
  Transmission Date: 20140414
  Serious: Yes (Hospitalization)
  Sender: FDA-Public Use
  Company Number: US-ASTRAZENECA-2012SE36467

PATIENT
  Age: 56 Year
  Sex: Female
  Weight: 90.7 kg

DRUGS (14)
  1. NEXIUM [Suspect]
     Indication: GASTROOESOPHAGEAL REFLUX DISEASE
     Route: 048
     Dates: start: 20050405, end: 20110330
  2. NEXIUM [Suspect]
     Indication: GASTROOESOPHAGEAL REFLUX DISEASE
     Route: 048
     Dates: start: 20050604
  3. PRILOSEC [Suspect]
     Route: 048
     Dates: start: 20021031, end: 20030405
  4. ACIPHEX [Concomitant]
     Dates: start: 20030515
  5. ACIPHEX [Concomitant]
     Dates: start: 20031119
  6. PROTONIX [Concomitant]
     Dates: start: 20040210, end: 20050226
  7. PROTONIX [Concomitant]
     Dates: start: 20110303
  8. PREVACID [Concomitant]
     Dates: start: 20010313, end: 20020815
  9. TAGAMET [Concomitant]
     Dates: start: 20000331
  10. CELEBREX [Concomitant]
     Dates: start: 20050409
  11. FLUOXETINE [Concomitant]
     Dates: start: 20050411
  12. DIAZEPAM [Concomitant]
     Dates: start: 20050423
  13. BUSPIRONE [Concomitant]
     Dates: start: 20050426
  14. CARISOPRODOL [Concomitant]
     Dates: start: 20050430

REACTIONS (7)
  - Back pain [Unknown]
  - Osteoporosis [Unknown]
  - Multiple fractures [Unknown]
  - Diabetes mellitus [Unknown]
  - Arthritis [Unknown]
  - Osteopenia [Unknown]
  - Depression [Unknown]
